FAERS Safety Report 19981766 (Version 1)
Quarter: 2021Q4

REPORT INFORMATION
  Report Type: Spontaneous
  Country: US (occurrence: US)
  Receive Date: 20211022
  Receipt Date: 20211022
  Transmission Date: 20220303
  Serious: No
  Sender: FDA-Public Use
  Company Number: US-PFIZER INC-202101360915

PATIENT
  Age: 53 Year
  Sex: Female

DRUGS (6)
  1. ENBREL [Suspect]
     Active Substance: ETANERCEPT
     Indication: Idiopathic pneumonia syndrome
     Dosage: UNK
     Route: 065
  2. SOLU-MEDROL [Suspect]
     Active Substance: METHYLPREDNISOLONE SODIUM SUCCINATE
     Indication: Idiopathic pneumonia syndrome
     Dosage: UNK
     Route: 065
  3. AZITHROMYCIN ANHYDROUS [Suspect]
     Active Substance: AZITHROMYCIN ANHYDROUS
     Indication: Evidence based treatment
     Dosage: UNK
     Route: 065
  4. AZITHROMYCIN ANHYDROUS [Suspect]
     Active Substance: AZITHROMYCIN ANHYDROUS
     Indication: Idiopathic pneumonia syndrome
     Dosage: UNK
     Route: 065
  5. CEFEPIME HYDROCHLORIDE [Suspect]
     Active Substance: CEFEPIME HYDROCHLORIDE
     Indication: Idiopathic pneumonia syndrome
     Dosage: UNK
     Route: 065
  6. CEFEPIME HYDROCHLORIDE [Suspect]
     Active Substance: CEFEPIME HYDROCHLORIDE
     Indication: Evidence based treatment
     Dosage: UNK
     Route: 065

REACTIONS (1)
  - Off label use [Unknown]
